FAERS Safety Report 9464145 (Version 1)
Quarter: 2013Q3

REPORT INFORMATION
  Report Type: Report from Study
  Country: AU (occurrence: AU)
  Receive Date: 20130819
  Receipt Date: 20130819
  Transmission Date: 20140515
  Serious: Yes (Other)
  Sender: FDA-Public Use
  Company Number: AU-SANOFI-AVENTIS-2013SA081827

PATIENT
  Age: 17 Year
  Sex: Male

DRUGS (2)
  1. RIFAMPICIN [Suspect]
     Indication: SKIN LESION
     Dosage: FORM: LIQUID FORMULATION
     Route: 048
  2. CLARITHROMYCIN [Suspect]
     Indication: SKIN LESION
     Dosage: FORM: LIQUID FORMULATION
     Route: 048

REACTIONS (2)
  - Mycobacterium ulcerans infection [Recovered/Resolved]
  - Rebound effect [Unknown]
